FAERS Safety Report 5779142-4 (Version None)
Quarter: 2008Q2

REPORT INFORMATION
  Report Type: 
  Country: None (occurrence: None)
  Receive Date: 20080619
  Receipt Date: 20080604
  Transmission Date: 20081010
  Serious: Yes (Hospitalization, Other)
  Sender: FDA-Public Use
  Company Number: PHHY2008JP08029

PATIENT
  Sex: Male

DRUGS (18)
  1. TEGRETOL [Suspect]
     Indication: DIABETIC NEUROPATHY
     Dosage: 200 MG, QD
     Route: 048
     Dates: start: 20061227, end: 20071016
  2. TEGRETOL [Suspect]
     Dosage: 200 MG, BID
     Route: 048
     Dates: start: 20071017
  3. TEGRETOL [Suspect]
     Dosage: 200 MG, BID
     Route: 048
     Dates: start: 20070901, end: 20080104
  4. MEXITIL [Suspect]
     Dosage: 200 MG, UNK
     Route: 048
     Dates: start: 20070701, end: 20080101
  5. CYANOCOBALAMIN [Concomitant]
     Dosage: 1500 MG, UNK
     Route: 048
     Dates: end: 20080104
  6. KINEDAK [Concomitant]
     Dosage: 100 MG, UNK
     Route: 048
     Dates: end: 20080104
  7. DORNER [Concomitant]
     Dosage: UNK
     Route: 048
     Dates: end: 20080104
  8. MAGLAX [Concomitant]
     Dosage: UNK
     Route: 048
     Dates: end: 20080104
  9. GASLON [Concomitant]
     Dosage: UNK
     Route: 048
     Dates: end: 20080104
  10. ADETPHOS [Concomitant]
     Dosage: UNK
     Route: 048
     Dates: end: 20080104
  11. ADONA [Concomitant]
     Dosage: UNK
     Route: 048
     Dates: end: 20080104
  12. ALDACTONE [Concomitant]
     Dosage: 25 MG, UNK
     Route: 048
  13. LASIX [Concomitant]
     Dosage: 20 MG, UNK
     Route: 048
  14. RABEPRAZOLE SODIUM [Concomitant]
     Dosage: 10 MG, UNK
     Route: 048
  15. MUCOSTA [Concomitant]
     Dosage: 200 MG, UNK
     Route: 048
  16. LIVACT [Concomitant]
     Route: 048
  17. STEROIDS NOS [Concomitant]
     Dosage: UNK
     Route: 048
     Dates: start: 20080107, end: 20080130
  18. DENOSINE [Concomitant]
     Dosage: UNK
     Dates: start: 20080116

REACTIONS (14)
  - ASCITES [None]
  - CYTOMEGALOVIRUS ANTIGEN POSITIVE [None]
  - DIARRHOEA [None]
  - DISSEMINATED INTRAVASCULAR COAGULATION [None]
  - DRUG RASH WITH EOSINOPHILIA AND SYSTEMIC SYMPTOMS [None]
  - DYSPHAGIA [None]
  - ERYTHEMA [None]
  - HEPATIC ENCEPHALOPATHY [None]
  - HERPES ZOSTER [None]
  - LIP EROSION [None]
  - LYMPH NODE PALPABLE [None]
  - PYREXIA [None]
  - RASH [None]
  - STOMATITIS [None]
